FAERS Safety Report 23171663 (Version 1)
Quarter: 2023Q4

REPORT INFORMATION
  Report Type: Report from Study
  Country: US (occurrence: US)
  Receive Date: 20231110
  Receipt Date: 20231110
  Transmission Date: 20240110
  Serious: Yes (Other)
  Sender: FDA-Public Use
  Company Number: US-ABBVIE-5489521

PATIENT
  Sex: Male

DRUGS (1)
  1. VENCLEXTA [Suspect]
     Active Substance: VENETOCLAX
     Indication: Product used for unknown indication
     Dosage: TAKE 4 TABLETS BY MOUTH DAILY WITH FOOD AND WATER FOR 3 DAYS STARTING ON THE DAY OF YOUR CHEMO IN...
     Route: 048

REACTIONS (4)
  - Platelet count decreased [Recovering/Resolving]
  - Nausea [Recovered/Resolved]
  - Arthralgia [Unknown]
  - Neck pain [Unknown]
